FAERS Safety Report 15357600 (Version 2)
Quarter: 2018Q3

REPORT INFORMATION
  Report Type: Report from Study
  Country: US (occurrence: US)
  Receive Date: 20180906
  Receipt Date: 20180926
  Transmission Date: 20181010
  Serious: Yes (Hospitalization, Other)
  Sender: FDA-Public Use
  Company Number: US-PFIZER INC-2018116365

PATIENT
  Age: 75 Year
  Sex: Male

DRUGS (4)
  1. SUTENT [Suspect]
     Active Substance: SUNITINIB MALATE
     Dosage: 37.5 MG, CYCLIC (2 WEEKS ON, 1 WEEK OFF)
     Route: 048
     Dates: start: 20180507
  2. SUTENT [Suspect]
     Active Substance: SUNITINIB MALATE
     Dosage: 37.5 MG, CYCLIC (2 WEEKS ON, 1 WEEK OFF)
     Route: 048
     Dates: start: 20180306, end: 20180729
  3. SUTENT [Suspect]
     Active Substance: SUNITINIB MALATE
     Dosage: 37.5 MG, CYCLIC, (2 WEEKS ON, 1 WEEK OFF), (DAILY)
     Route: 048
     Dates: start: 20180306, end: 201808
  4. SUTENT [Suspect]
     Active Substance: SUNITINIB MALATE
     Indication: RENAL CELL CARCINOMA
     Dosage: 50 MG, CYCLIC (2 WEEKS ON, 1 WEEK OFF)
     Route: 048
     Dates: start: 20180306, end: 20180313

REACTIONS (16)
  - Blood potassium increased [Unknown]
  - Blood creatinine increased [Unknown]
  - Bone pain [Unknown]
  - Muscle spasms [Recovering/Resolving]
  - Arthralgia [Unknown]
  - Dysuria [Unknown]
  - Back pain [Unknown]
  - Pneumonia [Unknown]
  - Cardiac disorder [Unknown]
  - Renal impairment [Recovering/Resolving]
  - Bone marrow failure [Unknown]
  - Anaemia [Not Recovered/Not Resolved]
  - Hypomagnesaemia [Unknown]
  - Dyspepsia [Unknown]
  - Headache [Unknown]
  - Musculoskeletal chest pain [Unknown]

NARRATIVE: CASE EVENT DATE: 2018
